FAERS Safety Report 18620022 (Version 1)
Quarter: 2020Q4

REPORT INFORMATION
  Report Type: Spontaneous
  Country: US (occurrence: US)
  Receive Date: 20201215
  Receipt Date: 20201215
  Transmission Date: 20210114
  Serious: No
  Sender: FDA-Public Use
  Company Number: US-PERRIGO-19US015575

PATIENT
  Sex: Female

DRUGS (1)
  1. TIOCONAZOLE. [Suspect]
     Active Substance: TIOCONAZOLE
     Indication: PRODUCT USED FOR UNKNOWN INDICATION
     Dosage: 300 MG, SINGLE
     Route: 067
     Dates: start: 20191211, end: 20191211

REACTIONS (2)
  - Vulvovaginal burning sensation [Not Recovered/Not Resolved]
  - Genital paraesthesia [Not Recovered/Not Resolved]

NARRATIVE: CASE EVENT DATE: 20191211
